FAERS Safety Report 5488631-1 (Version None)
Quarter: 2007Q4

REPORT INFORMATION
  Report Type: 
  Country: None (occurrence: None)
  Receive Date: 20071016
  Receipt Date: 20071001
  Transmission Date: 20080405
  Serious: Yes (Hospitalization)
  Sender: FDA-Public Use
  Company Number: 2007001754

PATIENT
  Age: 57 Year
  Sex: Male

DRUGS (1)
  1. TARCEVA [Suspect]
     Indication: NON-SMALL CELL LUNG CANCER
     Dosage: (QD), ORAL
     Route: 048
     Dates: start: 20070402, end: 20070610

REACTIONS (6)
  - DIARRHOEA [None]
  - GENERAL PHYSICAL HEALTH DETERIORATION [None]
  - HYPERKALAEMIA [None]
  - NAUSEA [None]
  - NEOPLASM PROGRESSION [None]
  - VOMITING [None]
